FAERS Safety Report 6579899-9 (Version None)
Quarter: 2010Q1

REPORT INFORMATION
  Report Type: 
  Country: None (occurrence: None)
  Receive Date: 20100212
  Receipt Date: 20100202
  Transmission Date: 20100710
  Serious: Yes (Hospitalization)
  Sender: FDA-Public Use
  Company Number: US-GENZYME-POMP-1000802

PATIENT
  Sex: Male
  Weight: 15.9 kg

DRUGS (3)
  1. MYOZYME [Suspect]
     Indication: GLYCOGEN STORAGE DISEASE TYPE II
     Dosage: 20 MG/KG, Q2W
     Route: 042
     Dates: start: 20060101
  2. FLOVENT [Concomitant]
     Indication: ASTHMA
     Dosage: 110 MCG, BID
     Route: 055
  3. ZYRTEC [Concomitant]
     Indication: HYPERSENSITIVITY
     Dosage: 1 OTHER, QD
     Route: 065

REACTIONS (4)
  - ASTHMA [None]
  - COUGH [None]
  - IRRITABILITY [None]
  - PRURITUS GENERALISED [None]
